FAERS Safety Report 5370871-3 (Version None)
Quarter: 2007Q2

REPORT INFORMATION
  Report Type: 
  Country: None (occurrence: None)
  Receive Date: 20070614
  Receipt Date: 20070417
  Transmission Date: 20071010
  Serious: No
  Sender: FDA-Public Use
  Company Number: BDI-009416

PATIENT
  Age: 62 Year

DRUGS (1)
  1. MULTIHANCE [Suspect]
     Indication: NUCLEAR MAGNETIC RESONANCE IMAGING
     Dosage: 10 ML ONCE IV
     Route: 042
     Dates: start: 20070414, end: 20070414

REACTIONS (2)
  - NAUSEA [None]
  - VOMITING [None]
